FAERS Safety Report 6162040-4 (Version None)
Quarter: 2009Q2

REPORT INFORMATION
  Report Type: 
  Country: None (occurrence: None)
  Receive Date: 20090417
  Receipt Date: 20090417
  Transmission Date: 20091009
  Serious: Yes (Hospitalization)
  Sender: FDA-Public Use
  Company Number: None

PATIENT
  Sex: Female
  Weight: 53.978 kg

DRUGS (5)
  1. EVEROLIMUS [Suspect]
     Indication: RECTAL CANCER
     Dosage: 7.5 MG
  2. LISINOPRIL [Concomitant]
  3. ZOLOFT [Concomitant]
  4. METHADONE [Concomitant]
  5. AMITRIPTLINE HYDROCHLORIDE TAB [Concomitant]

REACTIONS (1)
  - PERICARDIAL EFFUSION [None]
